FAERS Safety Report 24694670 (Version 2)
Quarter: 2024Q4

REPORT INFORMATION
  Report Type: Spontaneous
  Country: JP (occurrence: JP)
  Receive Date: 20241204
  Receipt Date: 20241220
  Transmission Date: 20250115
  Serious: Yes (Other)
  Sender: GENMAB
  Company Number: JP-GENMAB-2024-04378

PATIENT
  Age: 77 Year
  Sex: Male

DRUGS (7)
  1. EPKINLY [Suspect]
     Active Substance: EPCORITAMAB-BYSP
     Indication: Diffuse large B-cell lymphoma
     Dosage: UNK, TOTAL OF FIVE DOSES
     Route: 058
     Dates: start: 20240930, end: 2024
  2. DEXAMETHASONE [Suspect]
     Active Substance: DEXAMETHASONE
     Indication: Prophylaxis
     Dosage: UNK, FROM THE FIRST TO THE FOURTH ADMINISTRATION OF EPKINLY
     Route: 042
     Dates: start: 20240930, end: 2024
  3. RABEPRAZOLE SODIUM [Concomitant]
     Active Substance: RABEPRAZOLE SODIUM
     Dosage: 10 MILLIGRAM
     Route: 048
  4. FLUCONAZOLE [Concomitant]
     Active Substance: FLUCONAZOLE
     Dosage: 100 MILLIGRAM
     Route: 048
  5. SULFAMETHOXAZOLE AND TRIMETHOPRIM [Concomitant]
     Active Substance: SULFAMETHOXAZOLE\TRIMETHOPRIM
     Dosage: UNK
  6. ZOLPIDEM TARTRATE [Concomitant]
     Active Substance: ZOLPIDEM TARTRATE
     Dosage: 2.5 MILLIGRAM
  7. NAFTOPIDIL [Concomitant]
     Active Substance: NAFTOPIDIL
     Dosage: UNK

REACTIONS (5)
  - Tumour pseudoprogression [Recovered/Resolved]
  - Cytomegalovirus infection reactivation [Unknown]
  - Liver disorder [Unknown]
  - Enterovirus infection [Unknown]
  - Rhinovirus infection [Unknown]

NARRATIVE: CASE EVENT DATE: 20240101
